FAERS Safety Report 21781090 (Version 1)
Quarter: 2022Q4

REPORT INFORMATION
  Report Type: Other
  Country: US (occurrence: None)
  Receive Date: 20221227
  Receipt Date: 20221227
  Transmission Date: 20230113
  Serious: Yes (Other)
  Sender: FDA-Public Use
  Company Number: US-ROCHE-3248229

PATIENT
  Age: 53 Year
  Sex: Female
  Weight: 56.296 kg

DRUGS (11)
  1. OCREVUS [Suspect]
     Active Substance: OCRELIZUMAB
     Indication: Relapsing-remitting multiple sclerosis
     Dosage: 300 MG ON DAY 1 AND DAY 15?START DATE UNKNOWN BUT SHE HAS HAD 4 TO 5 INFUSIONS SO FAR ;ONGOING: YES
     Route: 042
  2. DIAZEPAM [Suspect]
     Active Substance: DIAZEPAM
     Indication: Tremor
     Dosage: STARTED SINCE DIAGNOSIS OF MS USES AS NEEDED AND NOT EVERY DAY
     Route: 048
  3. LUNESTA [Concomitant]
     Active Substance: ESZOPICLONE
  4. METOPROLOL [Concomitant]
     Active Substance: METOPROLOL
  5. BACLOFEN [Concomitant]
     Active Substance: BACLOFEN
  6. VITAMIN B12 [Concomitant]
     Active Substance: CYANOCOBALAMIN
  7. VITAMIN D3 [Concomitant]
     Active Substance: CHOLECALCIFEROL
  8. MIRTAZAPINE [Concomitant]
     Active Substance: MIRTAZAPINE
  9. TYSABRI [Concomitant]
     Active Substance: NATALIZUMAB
  10. REBIF [Concomitant]
     Active Substance: INTERFERON BETA-1A
  11. GILENYA [Concomitant]
     Active Substance: FINGOLIMOD HYDROCHLORIDE

REACTIONS (3)
  - Multiple sclerosis pseudo relapse [Recovered/Resolved]
  - COVID-19 [Recovered/Resolved]
  - Influenza [Recovered/Resolved]

NARRATIVE: CASE EVENT DATE: 20210101
